FAERS Safety Report 9474921 (Version 2)
Quarter: 2016Q2

REPORT INFORMATION
  Report Type: Report from Study
  Country: US (occurrence: US)
  Receive Date: 20130823
  Receipt Date: 20160428
  Transmission Date: 20160815
  Serious: Yes (Death)
  Sender: FDA-Public Use
  Company Number: US-ROCHE-1265691

PATIENT
  Age: 64 Year
  Sex: Male
  Weight: 46 kg

DRUGS (2)
  1. OXYCODONE [Concomitant]
     Active Substance: OXYCODONE
  2. XELODA [Suspect]
     Active Substance: CAPECITABINE
     Indication: GASTRIC CANCER
     Dosage: 2 TABLETS 2 TIMES PER DAY FOR 21DAYS THEN OFF FOR O DAY
     Route: 048

REACTIONS (8)
  - Weight decreased [Unknown]
  - Death [Fatal]
  - Alopecia [Unknown]
  - Dysphagia [Unknown]
  - Drug ineffective [Unknown]
  - Neuropathy peripheral [Unknown]
  - Nausea [Unknown]
  - Dyspnoea [Unknown]

NARRATIVE: CASE EVENT DATE: 201303
